FAERS Safety Report 11545464 (Version 2)
Quarter: 2015Q4

REPORT INFORMATION
  Report Type: Spontaneous
  Country: US (occurrence: US)
  Receive Date: 20150924
  Receipt Date: 20151001
  Transmission Date: 20160304
  Serious: Yes (Death, Other)
  Sender: FDA-Public Use
  Company Number: US-UNITED THERAPEUTICS-UNT-2015-011765

PATIENT
  Sex: Female
  Weight: 45.35 kg

DRUGS (1)
  1. REMODULIN [Suspect]
     Active Substance: TREPROSTINIL
     Indication: PULMONARY HYPERTENSION
     Dosage: 0.050 ?G/KG, CONTINUING
     Route: 058
     Dates: start: 20120821, end: 20150917

REACTIONS (3)
  - Hypotension [Unknown]
  - Right-to-left cardiac shunt [Fatal]
  - Pneumonia [Unknown]

NARRATIVE: CASE EVENT DATE: 2015
